FAERS Safety Report 21543558 (Version 1)
Quarter: 2022Q4

REPORT INFORMATION
  Report Type: Spontaneous
  Country: GB (occurrence: GB)
  Receive Date: 20221102
  Receipt Date: 20221102
  Transmission Date: 20230113
  Serious: Yes (Other)
  Sender: FDA-Public Use
  Company Number: None

PATIENT

DRUGS (7)
  1. IBUPROFEN [Suspect]
     Active Substance: IBUPROFEN
     Indication: Product used for unknown indication
     Dosage: 200MG/5ML.
     Route: 065
     Dates: start: 20201118
  2. CHLORPHENIRAMINE MALEATE [Concomitant]
     Active Substance: CHLORPHENIRAMINE MALEATE
     Indication: Product used for unknown indication
     Dosage: 7.5 DF, QD
     Route: 065
     Dates: start: 20161013
  3. SERETIDE [Concomitant]
     Active Substance: FLUTICASONE PROPIONATE\SALMETEROL XINAFOATE
     Indication: Asthma
     Dosage: 4 DF, QD, VIA SPACER.
     Route: 055
     Dates: start: 20180212
  4. CETIRIZINE [Concomitant]
     Active Substance: CETIRIZINE HYDROCHLORIDE
     Indication: Hypersensitivity
     Dosage: 10 ML, QD
     Route: 065
     Dates: start: 20191112
  5. MONTELUKAST [Concomitant]
     Active Substance: MONTELUKAST SODIUM
     Indication: Asthma
     Dosage: 1 DF, QD, AT NIGHT.
     Route: 065
     Dates: start: 20200511
  6. HYDROCORTISONE [Concomitant]
     Active Substance: HYDROCORTISONE
     Indication: Product used for unknown indication
     Dosage: 2 DF, QD, APPLY
     Route: 065
     Dates: start: 20170717
  7. ALBUTEROL [Concomitant]
     Active Substance: ALBUTEROL
     Indication: Product used for unknown indication
     Dosage: 1-2 DOSES THROUGH SPACER.(AS NECESSARY)
     Route: 055
     Dates: start: 20160914

REACTIONS (3)
  - Hypersensitivity [Unknown]
  - Asthma [Unknown]
  - Swelling [Unknown]

NARRATIVE: CASE EVENT DATE: 20201118
